FAERS Safety Report 14911973 (Version 2)
Quarter: 2018Q2

REPORT INFORMATION
  Report Type: Spontaneous
  Country: US (occurrence: US)
  Receive Date: 20180518
  Receipt Date: 20180630
  Transmission Date: 20180711
  Serious: No
  Sender: FDA-Public Use
  Company Number: US-TEVA-2018-US-892644

PATIENT
  Sex: Female

DRUGS (2)
  1. OLMESARTAN W/AMLODIPINE W/HYDROCHLOROTHIAZIDE [Suspect]
     Active Substance: AMLODIPINE\HYDROCHLOROTHIAZIDE\OLMESARTAN
     Indication: BLOOD PRESSURE MEASUREMENT
     Dosage: STRENGTH: 20MG /5 MG /12.5 MG
     Route: 065
     Dates: start: 20170314, end: 20180407
  2. OLMESARTAN W/AMLODIPINE W/HYDROCHLOROTHIAZIDE [Suspect]
     Active Substance: AMLODIPINE\HYDROCHLOROTHIAZIDE\OLMESARTAN
     Indication: HYPERTENSION

REACTIONS (1)
  - Drug effect variable [Unknown]
